FAERS Safety Report 7837200-4 (Version None)
Quarter: 2011Q4

REPORT INFORMATION
  Report Type: 
  Country: None (occurrence: None)
  Receive Date: 20111024
  Receipt Date: 20111024
  Transmission Date: 20120403
  Serious: No
  Sender: FDA-Public Use
  Company Number: US-B.I. PHARMACEUTICALS,INC./RIDGEFIELD-2011-BP-24807BP

PATIENT
  Sex: Female

DRUGS (6)
  1. MAXZIDE [Concomitant]
     Indication: HYPERTENSION
  2. ZANTAC 150 [Suspect]
     Indication: DYSPEPSIA
     Dosage: 150 MG
     Route: 048
     Dates: start: 20111001, end: 20111001
  3. SYNTHROID [Concomitant]
     Indication: HYPOTHYROIDISM
  4. NEXIUM [Concomitant]
     Indication: DYSPEPSIA
  5. ZANTAC 150 [Suspect]
  6. LISINOPRIL [Concomitant]
     Indication: HYPERTENSION

REACTIONS (3)
  - TACHYCARDIA [None]
  - CHILLS [None]
  - ABDOMINAL PAIN UPPER [None]
